FAERS Safety Report 10751576 (Version 1)
Quarter: 2015Q1

REPORT INFORMATION
  Report Type: Spontaneous
  Country: US (occurrence: US)
  Receive Date: 20150130
  Receipt Date: 20150130
  Transmission Date: 20150721
  Serious: No
  Sender: FDA-Public Use
  Company Number: US-ELI_LILLY_AND_COMPANY-US201501004313

PATIENT
  Sex: Female

DRUGS (2)
  1. LEVOTHYROXINE [Concomitant]
     Active Substance: LEVOTHYROXINE
  2. FORTEO [Suspect]
     Active Substance: TERIPARATIDE
     Indication: OSTEOPOROSIS
     Dosage: UNK UNK, QD
     Route: 065
     Dates: start: 201410

REACTIONS (4)
  - Abdominal pain [Unknown]
  - Nausea [Unknown]
  - Weight increased [Unknown]
  - Abdominal distension [Unknown]

NARRATIVE: CASE EVENT DATE: 201410
